FAERS Safety Report 5421668-7 (Version None)
Quarter: 2007Q3

REPORT INFORMATION
  Report Type: 
  Country: None (occurrence: None)
  Receive Date: 20070821
  Receipt Date: 20070809
  Transmission Date: 20080115
  Serious: Yes (Other)
  Sender: FDA-Public Use
  Company Number: CA-PFIZER INC-2007059887

PATIENT
  Sex: Male
  Weight: 81.2 kg

DRUGS (19)
  1. CHAMPIX [Suspect]
     Indication: EX-SMOKER
     Route: 048
     Dates: start: 20070701, end: 20070710
  2. MORPHINE [Interacting]
     Indication: NEPHROLITHIASIS
     Route: 042
  3. MORPHINE SULFATE [Concomitant]
     Route: 058
  4. PROMETHAZINE [Concomitant]
     Route: 030
  5. RAMIPRIL [Concomitant]
     Route: 048
  6. NADOLOL [Concomitant]
     Route: 048
  7. LIPITOR [Concomitant]
     Route: 048
  8. PROCHLORPERAZINE [Concomitant]
     Route: 048
  9. LOSEC [Concomitant]
     Route: 048
  10. DETROL LA [Concomitant]
     Route: 048
  11. COLACE [Concomitant]
     Route: 048
  12. FUROSEMIDE [Concomitant]
     Route: 048
  13. LASIX [Concomitant]
     Route: 042
  14. XATRAL [Concomitant]
     Route: 048
  15. APO-K [Concomitant]
     Route: 048
  16. LYRICA [Concomitant]
     Route: 048
  17. COMBIVENT [Concomitant]
  18. ASPIRIN [Concomitant]
     Route: 048
  19. TETRACYCLINE [Concomitant]
     Route: 048
     Dates: start: 20060106

REACTIONS (4)
  - DRUG INEFFECTIVE [None]
  - DRUG INTERACTION [None]
  - PAIN [None]
  - SMOKER [None]
